FAERS Safety Report 17108398 (Version 1)
Quarter: 2019Q4

REPORT INFORMATION
  Report Type: Report from Study
  Country: FR (occurrence: FR)
  Receive Date: 20191203
  Receipt Date: 20191203
  Transmission Date: 20200122
  Serious: Yes (Death, Other)
  Sender: FDA-Public Use
  Company Number: FR-PFIZER INC-2019515966

PATIENT
  Sex: Female

DRUGS (3)
  1. PACLITAXEL. [Suspect]
     Active Substance: PACLITAXEL
     Indication: BREAST CANCER
     Dosage: 90 MG/M2, ONCE WEEKLY (QW; 3-WEEKS-ON/1-WEEK-OFF)
     Route: 042
  2. TREBANANIB [Concomitant]
     Active Substance: TREBANANIB
     Indication: BREAST CANCER
     Dosage: 3 MG/KG, ONCE WEEKLY
  3. BEVACIZUMAB. [Concomitant]
     Active Substance: BEVACIZUMAB
     Indication: BREAST CANCER
     Dosage: 10 MG/KG, ONCE EVERY 2 WEEKS
     Route: 042

REACTIONS (2)
  - Respiratory failure [Fatal]
  - Diarrhoea [Fatal]
